FAERS Safety Report 15563479 (Version 1)
Quarter: 2018Q4

REPORT INFORMATION
  Report Type: Spontaneous
  Country: FR (occurrence: FR)
  Receive Date: 20181029
  Receipt Date: 20181029
  Transmission Date: 20190205
  Serious: Yes (Hospitalization, Other)
  Sender: FDA-Public Use
  Company Number: FR-009507513-1810FRA011896

PATIENT
  Age: 55 Year
  Sex: Female

DRUGS (1)
  1. PEMBROLIZUMAB. [Suspect]
     Active Substance: PEMBROLIZUMAB
     Indication: METASTATIC MALIGNANT MELANOMA
     Dosage: 2 MILLIGRAM/KILOGRAM, Q3W; 10 COURSES

REACTIONS (6)
  - Drug ineffective [Unknown]
  - Addison^s disease [Unknown]
  - Autoimmune endocrine disorder [Unknown]
  - Adrenocortical insufficiency acute [Unknown]
  - Adrenal atrophy [Unknown]
  - Thyroiditis [Unknown]
